FAERS Safety Report 9891889 (Version 3)
Quarter: 2014Q2

REPORT INFORMATION
  Report Type: Spontaneous
  Country: US (occurrence: None)
  Receive Date: 20140210
  Receipt Date: 20140425
  Transmission Date: 20141212
  Serious: Yes (Other)
  Sender: FDA-Public Use
  Company Number: CIO14007947

PATIENT
  Age: 39 Year
  Sex: Female
  Weight: 85.3 kg

DRUGS (6)
  1. CREST PRO-HEALTH ANTICAVITY FLUORIDE RINSE [Suspect]
     Indication: DENTAL CARE
     Dosage: 1 APPLIC, 2/DAY SUGGESTED DOSE, INTRAORAL
     Dates: start: 20140118, end: 20140119
  2. NEXIUM /01479302/ (ESOMEPRAZOLE MAGNESIUM) [Concomitant]
  3. LINZESS [Concomitant]
  4. SYNTHROID (LEVOTHYROXINE SODIUM) [Concomitant]
  5. ORTHO CYCLEN (ETHINYLESTRADIOL, NORGESTIMATE) [Concomitant]
  6. CREST PRO-HEALTH SENSITIVE + ENAMEL SHIELD TOOTHPASTE, SMOOTH MINT FLA (SODIUM POLYPHOSPHATE 14%, STANNOUS FLUORIDE 0.454%, ZINC LACTATE DIHYDRATE 2.5%) [Concomitant]

REACTIONS (28)
  - Hypersensitivity [None]
  - Retching [None]
  - Dyspnoea [None]
  - Swollen tongue [None]
  - Pharyngeal oedema [None]
  - Anaphylactoid reaction [None]
  - Lymphadenopathy [None]
  - Laryngeal inflammation [None]
  - Infection [None]
  - Tonsillar hypertrophy [None]
  - Pharyngitis [None]
  - Laryngeal pain [None]
  - Dysphonia [None]
  - Respiratory tract congestion [None]
  - Tongue disorder [None]
  - Gingival swelling [None]
  - Ear pain [None]
  - Sialoadenitis [None]
  - Salivary gland enlargement [None]
  - Oral infection [None]
  - Swelling face [None]
  - Pain in jaw [None]
  - Neck pain [None]
  - Local swelling [None]
  - Pharyngeal erythema [None]
  - Glossodynia [None]
  - Nasal discharge discolouration [None]
  - Salivary gland pain [None]
